FAERS Safety Report 8348809-6 (Version None)
Quarter: 2012Q2

REPORT INFORMATION
  Report Type: 
  Country: None (occurrence: None)
  Receive Date: 20120508
  Receipt Date: 20120503
  Transmission Date: 20120825
  Serious: Yes (Other)
  Sender: FDA-Public Use
  Company Number: SP05729

PATIENT
  Age: 68 Year
  Sex: Male
  Weight: 111.1313 kg

DRUGS (10)
  1. TRICOR [Concomitant]
  2. AVODART [Concomitant]
  3. ASPIRIN [Concomitant]
  4. ZETIA [Concomitant]
  5. ALLOPURINOL [Concomitant]
  6. FISH OIL [Concomitant]
  7. MOVIPREP [Suspect]
     Indication: BOWEL PREPARATION
     Dosage: ORAL
     Route: 048
     Dates: start: 20120424, end: 20120424
  8. AMLODIPINE BESYLATE AND BENAZEPRIL HCL [Concomitant]
  9. METOPROLOL TARTRATE [Concomitant]
  10. CALCIPOTRIENE (OINTMENT) [Concomitant]

REACTIONS (10)
  - ANORECTAL DISORDER [None]
  - NAUSEA [None]
  - PALLOR [None]
  - DYSKINESIA [None]
  - VERTIGO [None]
  - PRESYNCOPE [None]
  - URTICARIA [None]
  - HYPERSENSITIVITY [None]
  - PRURITUS [None]
  - PULSE ABSENT [None]
